FAERS Safety Report 20159865 (Version 1)
Quarter: 2021Q4

REPORT INFORMATION
  Report Type: Report from Study
  Country: TW (occurrence: TW)
  Receive Date: 20211208
  Receipt Date: 20211208
  Transmission Date: 20220303
  Serious: Yes (Hospitalization, Other)
  Sender: FDA-Public Use
  Company Number: TW-NOVARTISPH-NVSC2021TW273563

PATIENT
  Sex: Female

DRUGS (1)
  1. KISQALI [Suspect]
     Active Substance: RIBOCICLIB
     Indication: Breast cancer
     Dosage: 600 MG, QD
     Route: 048
     Dates: start: 20190320

REACTIONS (7)
  - Hypertensive heart disease [Recovered/Resolved]
  - Breast cancer female [Recovered/Resolved]
  - Neutropenia [Unknown]
  - Dyspnoea [Unknown]
  - Cough [Unknown]
  - Arthralgia [Recovered/Resolved]
  - Musculoskeletal stiffness [Unknown]
